FAERS Safety Report 8537049 (Version 3)
Quarter: 2012Q4

REPORT INFORMATION
  Report Type: 
  Country: US (occurrence: US)
  Receive Date: 20120430
  Receipt Date: 20120911
  Transmission Date: 20130627
  Serious: Yes (Other)
  Sender: FDA-Public Use
  Company Number: US-ELI_LILLY_AND_COMPANY-US201204007503

PATIENT
  Sex: Female
  Weight: 99.8 kg

DRUGS (7)
  1. FORTEO [Suspect]
     Indication: OSTEOPOROSIS
     Dosage: 20 ug, qd
     Dates: start: 200903, end: 200912
  2. FORTEO [Suspect]
     Dosage: 20 ug, qd
     Dates: start: 201101
  3. CORTICOSTEROIDS [Concomitant]
  4. DURAGESIC [Concomitant]
     Indication: PAIN
  5. VICODIN [Concomitant]
     Indication: PAIN
  6. PREDNISONE [Concomitant]
     Indication: AUTOIMMUNE DISORDER
     Dosage: UNK
     Dates: start: 2003
  7. DRISDOL [Concomitant]
     Indication: VITAMIN D DEFICIENCY
     Dosage: 1 DF, weekly (1/W)

REACTIONS (11)
  - Craniocerebral injury [Unknown]
  - Ill-defined disorder [Unknown]
  - Pelvic fracture [Not Recovered/Not Resolved]
  - Spinal compression fracture [Unknown]
  - Menopause [Unknown]
  - Thyroid disorder [Unknown]
  - Bone density decreased [Recovering/Resolving]
  - Amenorrhoea [Recovered/Resolved]
  - Blood parathyroid hormone decreased [Recovering/Resolving]
  - Intentional drug misuse [Recovered/Resolved]
  - Asthma [Unknown]
